FAERS Safety Report 4627230-8 (Version None)
Quarter: 2005Q2

REPORT INFORMATION
  Report Type: 
  Country: None (occurrence: None)
  Receive Date: 20050402
  Receipt Date: 20050402
  Transmission Date: 20051028
  Serious: Yes (Hospitalization)
  Sender: FDA-Public Use
  Company Number: None

PATIENT
  Sex: Male
  Weight: 69.4003 kg

DRUGS (5)
  1. CARBAMAZEPINE [Suspect]
     Indication: EPILEPSY
     Dosage: 800MG BID ORAL
     Route: 048
     Dates: start: 20041007, end: 20050110
  2. DIVALPROEX SODIUM [Concomitant]
  3. PHENYTOIN [Concomitant]
  4. ATORVASTATIN CALCIUM [Concomitant]
  5. PROPRANOLOL [Concomitant]

REACTIONS (4)
  - HYPONATRAEMIA [None]
  - INAPPROPRIATE ANTIDIURETIC HORMONE SECRETION [None]
  - LEUKOPENIA [None]
  - STATUS EPILEPTICUS [None]
